FAERS Safety Report 5892630-5 (Version None)
Quarter: 2008Q3

REPORT INFORMATION
  Report Type: 
  Country: None (occurrence: None)
  Receive Date: 20080919
  Receipt Date: 20080919
  Transmission Date: 20090109
  Serious: Yes (Other)
  Sender: FDA-Public Use
  Company Number: None

PATIENT
  Age: 49 Year
  Sex: Male
  Weight: 74.8435 kg

DRUGS (1)
  1. CARVEDILOL [Suspect]
     Indication: HYPERTENSION
     Dosage: 6.25 TAB BUT INCREASED TO 12.5  2 X PER DAY PO
     Route: 048
     Dates: start: 20070601, end: 20080918

REACTIONS (4)
  - DIZZINESS [None]
  - HYPOAESTHESIA [None]
  - PRURITUS [None]
  - URTICARIA [None]
